FAERS Safety Report 5442961-8 (Version None)
Quarter: 2007Q3

REPORT INFORMATION
  Report Type: 
  Country: None (occurrence: None)
  Receive Date: 20070905
  Receipt Date: 20070807
  Transmission Date: 20080115
  Serious: Yes (Other)
  Sender: FDA-Public Use
  Company Number: US-BRISTOL-MYERS SQUIBB COMPANY-13895347

PATIENT
  Age: 21 Year
  Sex: Female

DRUGS (15)
  1. CYCLOPHOSPHAMIDE [Suspect]
     Indication: BURKITT'S LYMPHOMA
     Route: 042
  2. MESNA [Suspect]
     Indication: BURKITT'S LYMPHOMA
     Route: 042
  3. IFOSFAMIDE [Suspect]
     Indication: BURKITT'S LYMPHOMA
     Route: 042
  4. DOXORUBICIN HCL [Suspect]
     Indication: BURKITT'S LYMPHOMA
     Route: 042
  5. ETOPOSIDE [Suspect]
     Indication: BURKITT'S LYMPHOMA
     Route: 042
  6. VINCRISTINE [Suspect]
     Indication: BURKITT'S LYMPHOMA
     Route: 042
  7. STARASID [Suspect]
     Indication: BURKITT'S LYMPHOMA
     Route: 037
  8. LEUCOVORIN CALCIUM [Suspect]
     Indication: BURKITT'S LYMPHOMA
     Route: 042
  9. GRANULOCYTE CSF [Suspect]
     Indication: BURKITT'S LYMPHOMA
     Dosage: 5 UG/KG
     Route: 058
  10. ALLOPURINOL [Suspect]
     Indication: TUMOUR LYSIS SYNDROME
     Route: 048
  11. ONDANSETRON [Suspect]
     Indication: PROPHYLAXIS OF NAUSEA AND VOMITING
     Route: 048
  12. DEXAMETHASONE 0.5MG TAB [Suspect]
     Indication: PROPHYLAXIS OF NAUSEA AND VOMITING
     Route: 048
  13. PROMETHAZINE [Suspect]
     Indication: PROPHYLAXIS OF NAUSEA AND VOMITING
     Route: 048
  14. FILGRASTIM [Suspect]
     Dosage: 480 UG
     Route: 058
  15. DARBEPOETIN ALFA [Suspect]
     Dosage: 100 UG
     Route: 058

REACTIONS (4)
  - DIARRHOEA [None]
  - FEBRILE NEUTROPENIA [None]
  - PREGNANCY [None]
  - URINARY TRACT INFECTION [None]
